FAERS Safety Report 10486633 (Version 2)
Quarter: 2015Q3

REPORT INFORMATION
  Report Type: Spontaneous
  Country: US (occurrence: US)
  Receive Date: 20141001
  Receipt Date: 20150923
  Transmission Date: 20151125
  Serious: No
  Sender: FDA-Public Use
  Company Number: US-KOWA-2014S1000810

PATIENT
  Age: 69 Year
  Sex: Female

DRUGS (3)
  1. LIVALO [Suspect]
     Active Substance: PITAVASTATIN CALCIUM
     Indication: BLOOD CHOLESTEROL INCREASED
     Dosage: 1 MG, QD
     Route: 048
     Dates: start: 201406, end: 20140626
  2. CALTRATE                           /00944201/ [Concomitant]
  3. CENTRUM /07419501/ [Concomitant]

REACTIONS (6)
  - Fatigue [Recovered/Resolved]
  - Depressed level of consciousness [Recovered/Resolved]
  - Pain in extremity [Recovered/Resolved]
  - Dysuria [Recovered/Resolved]
  - Depression [Recovered/Resolved]
  - Drooling [Not Recovered/Not Resolved]

NARRATIVE: CASE EVENT DATE: 20140625
